FAERS Safety Report 8820436 (Version 1)
Quarter: 2012Q4

REPORT INFORMATION
  Report Type: 
  Country: AU (occurrence: GB)
  Receive Date: 20121002
  Receipt Date: 20121002
  Transmission Date: 20130627
  Serious: Yes (Other)
  Sender: FDA-Public Use
  Company Number: GB-009507513-1209GBR011616

PATIENT

DRUGS (2)
  1. ZOCOR [Suspect]
     Route: 048
  2. PAZOPANIB HYDROCHLORIDE [Interacting]
     Indication: NEOPLASM MALIGNANT

REACTIONS (2)
  - Alanine aminotransferase increased [Unknown]
  - Drug interaction [Unknown]
